FAERS Safety Report 4857630-2 (Version None)
Quarter: 2005Q4

REPORT INFORMATION
  Report Type: 
  Country: None (occurrence: None)
  Receive Date: 20051219
  Receipt Date: 20050531
  Transmission Date: 20060501
  Serious: No
  Sender: FDA-Public Use
  Company Number: US-GLAXOSMITHKLINE-A0560535A

PATIENT
  Age: 53 Year
  Sex: Female

DRUGS (4)
  1. NICODERM CQ [Suspect]
     Dates: start: 20050527, end: 20050531
  2. TRILEPTAL [Concomitant]
  3. CLONAZEPAM [Concomitant]
  4. CLOZAPINE [Concomitant]

REACTIONS (1)
  - DRUG INEFFECTIVE [None]
